FAERS Safety Report 8139187-6 (Version None)
Quarter: 2012Q1

REPORT INFORMATION
  Report Type: 
  Country: None (occurrence: None)
  Receive Date: 20120215
  Receipt Date: 20120213
  Transmission Date: 20120608
  Serious: No
  Sender: FDA-Public Use
  Company Number: US-PFIZER INC-2012005962

PATIENT
  Sex: Female

DRUGS (1)
  1. ATORVASTATIN CALCIUM [Suspect]
     Indication: CARDIAC DISORDER
     Dosage: UNK

REACTIONS (3)
  - RASH [None]
  - EYE SWELLING [None]
  - SWELLING FACE [None]
